FAERS Safety Report 5653304-9 (Version None)
Quarter: 2008Q1

REPORT INFORMATION
  Report Type: 
  Country: None (occurrence: None)
  Receive Date: 20080306
  Receipt Date: 20080305
  Transmission Date: 20080703
  Serious: Yes (Hospitalization)
  Sender: FDA-Public Use
  Company Number: A0713441A

PATIENT
  Age: 73 Year
  Sex: Female

DRUGS (7)
  1. ALLI [Suspect]
     Indication: WEIGHT LOSS DIET
     Route: 048
     Dates: start: 20080128, end: 20080228
  2. ARTHROTEC [Concomitant]
  3. LISINOPRIL [Concomitant]
  4. CITALOPRAM HYDROBROMIDE [Concomitant]
  5. SIMVASTATIN [Concomitant]
  6. LEVOTHYROXINE SODIUM [Concomitant]
  7. XANAX [Concomitant]

REACTIONS (4)
  - AMNESIA [None]
  - APHASIA [None]
  - PANIC ATTACK [None]
  - TRANSIENT ISCHAEMIC ATTACK [None]
